FAERS Safety Report 15603444 (Version 2)
Quarter: 2018Q4

REPORT INFORMATION
  Report Type: Report from Study
  Country: GB (occurrence: GB)
  Receive Date: 20181109
  Receipt Date: 20181130
  Transmission Date: 20190205
  Serious: Yes (Hospitalization)
  Sender: FDA-Public Use
  Company Number: GB-SHIRE-GB201842692

PATIENT

DRUGS (2)
  1. PEGYLATED COAGULATION FACTOR VIII [Suspect]
     Active Substance: ANTIHEMOPHILIC FACTOR, PEGYLATED (MW 20000) HUMAN SEQUENCE RECOMBINANT
     Indication: FACTOR VIII DEFICIENCY
     Dosage: 1000 IU, ONE DOSE
     Route: 040
     Dates: start: 20181019, end: 20181019
  2. SYTRON [Concomitant]
     Indication: IRON DEFICIENCY
     Dosage: 5 ML, 1X/DAY:QD
     Route: 048
     Dates: start: 20180706

REACTIONS (1)
  - Tonsillitis [Recovered/Resolved]

NARRATIVE: CASE EVENT DATE: 20181019
